FAERS Safety Report 4263510-6 (Version None)
Quarter: 2004Q1

REPORT INFORMATION
  Report Type: 
  Country: None (occurrence: None)
  Receive Date: 20040105
  Receipt Date: 20031215
  Transmission Date: 20041129
  Serious: Yes (Death, Other)
  Sender: FDA-Public Use
  Company Number: JP-BRISTOL-MYERS SQUIBB COMPANY-12458311

PATIENT
  Age: 63 Year
  Sex: Female

DRUGS (5)
  1. TAXOL [Suspect]
     Indication: UTERINE CANCER
     Dosage: DOSE ON 16-OCT-2003 WAS 210 MG.
     Route: 042
     Dates: start: 20031016, end: 20031106
  2. PARAPLATIN [Suspect]
     Indication: UTERINE CANCER
     Dosage: DOSE ON 16-OCT-2003 WAS 500 MG
     Route: 042
     Dates: start: 20031016, end: 20031106
  3. DECADRON [Concomitant]
     Route: 042
     Dates: start: 20031016, end: 20031106
  4. ZANTAC [Concomitant]
     Route: 042
     Dates: start: 20031016, end: 20031106
  5. ZOFRAN [Concomitant]
     Route: 042
     Dates: start: 20031016, end: 20031106

REACTIONS (5)
  - CARDIAC FAILURE ACUTE [None]
  - HAEMOGLOBIN DECREASED [None]
  - PLATELET COUNT DECREASED [None]
  - RED BLOOD CELL COUNT DECREASED [None]
  - THROMBOSIS [None]
